FAERS Safety Report 8110836-1 (Version None)
Quarter: 2012Q1

REPORT INFORMATION
  Report Type: 
  Country: None (occurrence: None)
  Receive Date: 20120203
  Receipt Date: 20120126
  Transmission Date: 20120608
  Serious: Yes (Hospitalization, Disabling)
  Sender: FDA-Public Use
  Company Number: US-BAYER-2011-044961

PATIENT
  Age: 35 Year
  Sex: Female
  Weight: 56.689 kg

DRUGS (4)
  1. YAZ [Suspect]
     Indication: CONTRACEPTION
     Dosage: UNK
     Dates: start: 20070101, end: 20070101
  2. LORTAB [Concomitant]
  3. YASMIN [Suspect]
     Indication: CONTRACEPTION
     Dosage: UNK
     Dates: start: 20070101, end: 20090101
  4. DROSPIRENONE AND ETHINYL ESTRADIOL [Suspect]
     Dosage: UNK
     Dates: start: 20080101

REACTIONS (9)
  - CHOLECYSTITIS ACUTE [None]
  - ANHEDONIA [None]
  - GALLBLADDER DISORDER [None]
  - ANXIETY [None]
  - DEFAECATION URGENCY [None]
  - PAIN [None]
  - ABDOMINAL PAIN [None]
  - INJURY [None]
  - DEFORMITY [None]
